FAERS Safety Report 14431080 (Version 1)
Quarter: 2018Q1

REPORT INFORMATION
  Report Type: Report from Study
  Country: CA (occurrence: CA)
  Receive Date: 20180124
  Receipt Date: 20180124
  Transmission Date: 20180509
  Serious: Yes (Hospitalization)
  Sender: FDA-Public Use
  Company Number: CA-ROCHE-2056694

PATIENT
  Age: 66 Year
  Sex: Male
  Weight: 79.2 kg

DRUGS (13)
  1. ANDROGEL [Concomitant]
     Active Substance: TESTOSTERONE
     Indication: ANDROGEN DEFICIENCY
     Dosage: TO BILAT ARMS
     Route: 065
  2. SOFLAX (CANADA) [Concomitant]
     Indication: CONSTIPATION
     Route: 065
  3. HYDROMORPH CONTIN [Concomitant]
     Active Substance: HYDROMORPHONE
     Indication: PAIN
     Route: 065
  4. HYDROMORPHONE [Concomitant]
     Active Substance: HYDROMORPHONE
     Indication: PAIN
     Route: 065
  5. PREDNISONE. [Concomitant]
     Active Substance: PREDNISONE
     Route: 065
  6. OMEGA 3 [Concomitant]
     Active Substance: OMEGA-3 FATTY ACIDS
     Dosage: 1 TABLET
     Route: 065
  7. ROSUVASTATIN. [Concomitant]
     Active Substance: ROSUVASTATIN
     Indication: BLOOD CHOLESTEROL
     Dosage: AT BEDTIME
     Route: 065
  8. FLOMAX [Concomitant]
     Active Substance: TAMSULOSIN HYDROCHLORIDE
     Indication: BENIGN PROSTATIC HYPERPLASIA
     Route: 065
  9. GRASTOFIL [Concomitant]
     Active Substance: FILGRASTIM
     Indication: PROPHYLAXIS
     Dosage: FOR 5 DAYS
     Route: 058
     Dates: start: 20180104, end: 20180108
  10. ALLOPURINOL. [Concomitant]
     Active Substance: ALLOPURINOL
     Indication: GOUT
     Route: 065
  11. TELMISARTAN. [Concomitant]
     Active Substance: TELMISARTAN
     Indication: HYPERTENSION
     Route: 065
  12. OBINUTUZUMAB. [Suspect]
     Active Substance: OBINUTUZUMAB
     Indication: NON-HODGKIN^S LYMPHOMA
     Dosage: DATE OF LAST DOSE OF A PRIOR TO SERIOUS ADVERSE EVENT (SAE): 27/DEC/2017?FOR 1.5-6.5 HOURS FOR A DUR
     Route: 042
     Dates: start: 20171127
  13. RABEPRAZOLE [Concomitant]
     Active Substance: RABEPRAZOLE
     Indication: GASTROOESOPHAGEAL REFLUX DISEASE
     Route: 065

REACTIONS (1)
  - Presyncope [Recovered/Resolved]

NARRATIVE: CASE EVENT DATE: 20180115
